FAERS Safety Report 21449038 (Version 2)
Quarter: 2022Q4

REPORT INFORMATION
  Report Type: Report from Study
  Country: DE (occurrence: DE)
  Receive Date: 20221013
  Receipt Date: 20221213
  Transmission Date: 20230113
  Serious: Yes (Hospitalization, Other)
  Sender: FDA-Public Use
  Company Number: DE-BRISTOL-MYERS SQUIBB COMPANY-2022-117542

PATIENT
  Age: 72 Year
  Sex: Male
  Weight: 91 kg

DRUGS (17)
  1. AZACITIDINE [Suspect]
     Active Substance: AZACITIDINE
     Indication: Myelodysplastic syndrome
     Dosage: 7 DAYS WITHIN THE FIRST 9 CALENDAR DAYS OF EACH 28-DAY CYCLE, EVERY 1 DAYS
     Route: 058
     Dates: start: 20220221, end: 20220830
  2. PREDNISOLONE [Concomitant]
     Active Substance: PREDNISOLONE
     Indication: Polyarthritis
     Dates: start: 202008, end: 20220306
  3. PREDNISOLONE [Concomitant]
     Active Substance: PREDNISOLONE
     Dates: start: 2022, end: 20221107
  4. GRANISETRON [Concomitant]
     Active Substance: GRANISETRON
     Indication: Prophylaxis of nausea and vomiting
     Dates: start: 20220221, end: 20220301
  5. CEFPODOXIMA [Concomitant]
     Indication: Anti-infective therapy
     Dates: start: 20220307
  6. AMPHOTERICIN B [Concomitant]
     Active Substance: AMPHOTERICIN B
     Indication: Antifungal prophylaxis
     Dates: start: 20220307
  7. CALCIUM [Concomitant]
     Active Substance: CALCIUM
     Indication: Muscle spasms
     Dates: start: 20220307
  8. MAGNESIUM [Concomitant]
     Active Substance: MAGNESIUM
     Indication: Muscle spasms
     Dates: start: 20220307
  9. RAMIPRIL [Concomitant]
     Active Substance: RAMIPRIL
     Indication: Hypertension
     Dates: start: 20220524
  10. ETANERCEPT BS [ETANERCEPT] [Concomitant]
     Indication: Arthralgia
     Dates: start: 20220601
  11. CIPROFLOXACIN HYDROCHLORIDE [Concomitant]
     Active Substance: CIPROFLOXACIN HYDROCHLORIDE
     Indication: Sinusitis
     Dates: start: 2022, end: 20221107
  12. DAFLON [BIOFLAVONOIDS NOS;DIOSMIN;HESPERIDIN] [Concomitant]
     Indication: Muscle spasms
     Dates: start: 2022, end: 20221107
  13. FOLIC ACID [Concomitant]
     Active Substance: FOLIC ACID
     Indication: Anaemia
     Dates: start: 2022, end: 20221107
  14. BIDOCEF [CEFADROXIL] [Concomitant]
     Indication: Sinusitis
     Dates: start: 2022, end: 20221107
  15. MAGVITAL [Concomitant]
     Indication: Muscle spasms
     Dates: start: 2022, end: 20221108
  16. PANTOPRAZOLE [Concomitant]
     Active Substance: PANTOPRAZOLE
     Indication: Prophylaxis against gastrointestinal ulcer
     Dates: start: 2022, end: 20221107
  17. URSODIOL [Concomitant]
     Active Substance: URSODIOL
     Indication: Prophylaxis
     Dates: start: 2022, end: 20221107

REACTIONS (2)
  - Pneumonia [Not Recovered/Not Resolved]
  - Diphtheria [Not Recovered/Not Resolved]

NARRATIVE: CASE EVENT DATE: 20220920
